FAERS Safety Report 15779265 (Version 2)
Quarter: 2023Q2

REPORT INFORMATION
  Report Type: Spontaneous
  Country: US (occurrence: US)
  Receive Date: 20190101
  Receipt Date: 20230525
  Transmission Date: 20230721
  Serious: No
  Sender: FDA-Public Use
  Company Number: US-PFIZER INC-2018536855

PATIENT
  Age: 39 Year
  Sex: Female

DRUGS (3)
  1. XELJANZ [Suspect]
     Active Substance: TOFACITINIB CITRATE
     Indication: Colitis ulcerative
     Dosage: 10 MG, 2X/DAY
     Dates: start: 20180918
  2. XELJANZ [Suspect]
     Active Substance: TOFACITINIB CITRATE
     Indication: Arthropathy
  3. XELJANZ [Suspect]
     Active Substance: TOFACITINIB CITRATE
     Indication: Arthralgia

REACTIONS (2)
  - Oral herpes [Unknown]
  - Therapeutic response unexpected [Unknown]
